FAERS Safety Report 7908400 (Version 23)
Quarter: 2014Q2

REPORT INFORMATION
  Report Type: Spontaneous
  Country: US (occurrence: US)
  Receive Date: 20110421
  Receipt Date: 20140625
  Transmission Date: 20141212
  Serious: Yes (Other)
  Sender: FDA-Public Use
  Company Number: PHEH2011US00465

PATIENT
  Sex: Male

DRUGS (3)
  1. ZOMETA [Suspect]
     Indication: METASTASES TO BONE
     Dosage: 4 MG, QMO
     Route: 042
     Dates: end: 20090812
  2. ZOMETA [Suspect]
     Indication: OSTEOPENIA
  3. CASODEX [Concomitant]
     Dosage: UNK UKN, UNK

REACTIONS (84)
  - Osteonecrosis of jaw [Unknown]
  - Pain [Unknown]
  - Infection [Unknown]
  - Deformity [Unknown]
  - Injury [Unknown]
  - Anxiety [Unknown]
  - Physical disability [Unknown]
  - Hip fracture [Unknown]
  - Adenocarcinoma of colon [Unknown]
  - Large intestine polyp [Unknown]
  - Hypothyroidism [Unknown]
  - Dyslipidaemia [Unknown]
  - Prostate cancer [Unknown]
  - Metastases to bone [Unknown]
  - Joint dislocation [Unknown]
  - Liver function test abnormal [Unknown]
  - Large intestinal ulcer [Unknown]
  - Diverticulum intestinal [Unknown]
  - Renal failure chronic [Unknown]
  - Fall [Unknown]
  - Hepatic cyst [Unknown]
  - Rectal haemorrhage [Unknown]
  - Anaemia [Unknown]
  - Hypertension [Unknown]
  - Appendix disorder [Unknown]
  - Fibrosis [Unknown]
  - Haemorrhoids [Unknown]
  - Ileus [Recovered/Resolved]
  - Osteomyelitis [Unknown]
  - Periodontal disease [Unknown]
  - Wound [Unknown]
  - Soft tissue sarcoma [Unknown]
  - Second primary malignancy [Unknown]
  - Impaired healing [Unknown]
  - Exposed bone in jaw [Unknown]
  - Bone loss [Unknown]
  - Blood cholesterol increased [Unknown]
  - Pulmonary mass [Recovered/Resolved]
  - Pancreatic duct dilatation [Unknown]
  - Gingival bleeding [Unknown]
  - Joint stiffness [Unknown]
  - Excessive granulation tissue [Unknown]
  - Arthropathy [Unknown]
  - Osteoarthritis [Unknown]
  - Osteoporosis [Unknown]
  - Dizziness [Unknown]
  - Toothache [Unknown]
  - Pain in jaw [Unknown]
  - Mastication disorder [Unknown]
  - Exostosis of jaw [Unknown]
  - Mass [Unknown]
  - Connective tissue neoplasm [Unknown]
  - Metastases to spine [Unknown]
  - Hyperkalaemia [Unknown]
  - Femoral neck fracture [Unknown]
  - Cardiomegaly [Unknown]
  - Sinus bradycardia [Unknown]
  - Left atrial dilatation [Unknown]
  - Left ventricular hypertrophy [Unknown]
  - Intervertebral disc degeneration [Unknown]
  - Sweat gland tumour [Unknown]
  - Dental caries [Unknown]
  - Benign prostatic hyperplasia [Unknown]
  - Joint injury [Unknown]
  - Renal disorder [Unknown]
  - Urethral disorder [Unknown]
  - Pelvic cyst [Unknown]
  - Aortic calcification [Unknown]
  - Vascular calcification [Unknown]
  - Pulmonary valve incompetence [Unknown]
  - Vertebral osteophyte [Unknown]
  - Intervertebral disc space narrowing [Unknown]
  - Spinal osteoarthritis [Unknown]
  - Osteosclerosis [Unknown]
  - Gait disturbance [Unknown]
  - Nausea [Unknown]
  - Fatigue [Unknown]
  - Arthralgia [Unknown]
  - Back pain [Unknown]
  - Dermal cyst [Unknown]
  - Pain in extremity [Unknown]
  - Hot flush [Unknown]
  - Cough [Unknown]
  - Muscle spasms [Unknown]
